FAERS Safety Report 7936993-5 (Version None)
Quarter: 2011Q4

REPORT INFORMATION
  Report Type: 
  Country: None (occurrence: None)
  Receive Date: 20111123
  Receipt Date: 20111114
  Transmission Date: 20120403
  Serious: Yes (Hospitalization)
  Sender: FDA-Public Use
  Company Number: MX-MEDIMMUNE-MEDI-0013940

PATIENT
  Sex: Male
  Weight: 4.74 kg

DRUGS (5)
  1. SYNAGIS [Suspect]
  2. SODIUM CRISTALINE PENICILLIN [Concomitant]
     Indication: PNEUMONIA
     Dates: start: 20111108
  3. SYNAGIS [Suspect]
     Indication: BRONCHOPULMONARY DYSPLASIA
     Route: 030
     Dates: start: 20111021, end: 20111021
  4. FLUTICASONE PROPIONATE [Concomitant]
     Indication: BRONCHOPULMONARY DYSPLASIA
     Route: 055
     Dates: start: 20110601
  5. CAPTOPRIL [Concomitant]
     Indication: BRONCHOPULMONARY DYSPLASIA
     Route: 048
     Dates: start: 20111108

REACTIONS (6)
  - INCREASED BRONCHIAL SECRETION [None]
  - PNEUMONIA [None]
  - URINE OUTPUT DECREASED [None]
  - DECREASED APPETITE [None]
  - IRRITABILITY [None]
  - RESPIRATORY DISTRESS [None]
